FAERS Safety Report 12214090 (Version 2)
Quarter: 2016Q2

REPORT INFORMATION
  Report Type: Report from Study
  Country: JP (occurrence: JP)
  Receive Date: 20160328
  Receipt Date: 20160502
  Transmission Date: 20160815
  Serious: Yes (Hospitalization)
  Sender: FDA-Public Use
  Company Number: JP-TAIHO ONCOLOGY INC-JPTT160092

PATIENT
  Age: 63 Year
  Sex: Male
  Weight: 43 kg

DRUGS (5)
  1. MAGLAX [Concomitant]
     Active Substance: MAGNESIUM OXIDE
     Indication: CONSTIPATION
     Dosage: STARTED BEFORE STUDY INITIATION
     Route: 048
  2. HIRUDOID [Concomitant]
     Active Substance: GLYCOSAMINOGLYCANS
     Indication: DRY SKIN
     Dosage: STARTED BEFORE STUDY INITIATION
     Route: 061
  3. HIRUDOID [Concomitant]
     Active Substance: GLYCOSAMINOGLYCANS
     Indication: DERMATITIS ACNEIFORM
  4. TRAMCET [Concomitant]
     Active Substance: ACETAMINOPHEN\TRAMADOL
     Indication: TUMOUR PAIN
     Dosage: 1 TABLET X 4-5/DAY, STARTED BEFORE STUDY INITIATION
     Route: 048
  5. LONSURF [Suspect]
     Active Substance: TIPIRACIL HYDROCHLORIDE\TRIFLURIDINE
     Indication: OESOPHAGEAL CARCINOMA
     Dosage: ON DAYS 1-5 AND 8-12 OF EACH 28-DAY CYCLE, CYCLES 1-2
     Route: 048
     Dates: start: 20151217, end: 20160130

REACTIONS (2)
  - Bronchial fistula [Not Recovered/Not Resolved]
  - Pneumonia aspiration [Not Recovered/Not Resolved]

NARRATIVE: CASE EVENT DATE: 20160208
